FAERS Safety Report 23230145 (Version 2)
Quarter: 2023Q4

REPORT INFORMATION
  Report Type: Report from Study
  Country: BR (occurrence: None)
  Receive Date: 20231127
  Receipt Date: 20231207
  Transmission Date: 20240110
  Serious: Yes (Other)
  Sender: FDA-Public Use
  Company Number: BR-ROCHE-3458456

PATIENT
  Age: 48 Year
  Sex: Female
  Weight: 70.3 kg

DRUGS (10)
  1. OBINUTUZUMAB [Suspect]
     Active Substance: OBINUTUZUMAB
     Indication: Glomerulonephritis membranous
     Dosage: START DATE OF MOST RECENT DOSE OF STUDY DRUG PRIOR TO AE 30/OCT/2023 10:49 AM?DOSE CONCENTRATION 4MG
     Route: 042
     Dates: start: 20231016
  2. ENALAPRIL [Concomitant]
     Active Substance: ENALAPRIL
     Indication: Glomerulonephritis membranous
     Route: 048
     Dates: start: 202305, end: 20231031
  3. ENALAPRIL [Concomitant]
     Active Substance: ENALAPRIL
     Route: 048
     Dates: start: 20231101
  4. FUROSEMIDE [Concomitant]
     Active Substance: FUROSEMIDE
     Indication: Glomerulonephritis membranous
     Route: 048
     Dates: start: 202307
  5. SIMVASTATIN [Concomitant]
     Active Substance: SIMVASTATIN
     Indication: Dyslipidaemia
     Route: 048
     Dates: start: 202301
  6. DIPYRONE [Concomitant]
     Active Substance: DIPYRONE
     Route: 050
     Dates: start: 20231017, end: 20231017
  7. PREDNISONE [Concomitant]
     Active Substance: PREDNISONE
     Indication: Cough
     Dates: start: 20231108
  8. METHYLPREDNISOLONE [Concomitant]
     Active Substance: METHYLPREDNISOLONE
     Route: 042
     Dates: start: 20231016, end: 20231016
  9. METHYLPREDNISOLONE [Concomitant]
     Active Substance: METHYLPREDNISOLONE
     Route: 042
     Dates: start: 20231030, end: 20231030
  10. BETAMETHASONE;KETOCONAZOLE [Concomitant]
     Indication: Dermatitis
     Dates: start: 20231020, end: 20231025

REACTIONS (1)
  - Peripheral artery thrombosis [Recovered/Resolved]

NARRATIVE: CASE EVENT DATE: 20231113
